FAERS Safety Report 6744393-9 (Version None)
Quarter: 2010Q2

REPORT INFORMATION
  Report Type: 
  Country: None (occurrence: None)
  Receive Date: 20100527
  Receipt Date: 20100517
  Transmission Date: 20101027
  Serious: Yes (Death)
  Sender: FDA-Public Use
  Company Number: FR-PFIZER INC-2010061299

PATIENT
  Age: 53 Year
  Sex: Male

DRUGS (4)
  1. CAMPTOSAR [Suspect]
     Indication: RECTAL CANCER
     Dosage: UNK
     Route: 042
     Dates: start: 20090806, end: 20090910
  2. ERBITUX [Suspect]
     Indication: RECTAL CANCER
     Dosage: UNK
     Route: 042
     Dates: start: 20090806, end: 20090917
  3. AVASTIN [Suspect]
     Indication: RECTAL CANCER
     Dosage: 5 MG/KG EVERY TWO WEEKS
     Route: 042
     Dates: start: 20081013, end: 20090420
  4. PAZOPANIB [Concomitant]
     Dosage: 400 MG DAILY DOSE
     Route: 048
     Dates: start: 20090807, end: 20090924

REACTIONS (2)
  - PELVIC SEPSIS [None]
  - PERINEAL INFECTION [None]
